FAERS Safety Report 8734893 (Version 2)
Quarter: 2012Q4

REPORT INFORMATION
  Report Type: Spontaneous
  Country: US (occurrence: None)
  Receive Date: 20120803
  Receipt Date: 20120814
  Transmission Date: 20130627
  Serious: Yes (Death)
  Sender: FDA-Public Use
  Company Number: QSC-2012-0141

PATIENT
  Age: 71 Year
  Sex: Male

DRUGS (3)
  1. ADRENOCORTICOTROPIC HORMONE [Suspect]
     Indication: FOCAL SEGMENTAL GLOMERULOSCLEROSIS
     Dosage: 80 UNITS, BIW, SUBCUTANEOUS
     Route: 058
     Dates: start: 20120605, end: 20120628
  2. CELLCEPT [Concomitant]
  3. UNSPECIFIED INGREDIENTS [Concomitant]

REACTIONS (2)
  - Acute coronary syndrome [None]
  - Sudden death [None]
